FAERS Safety Report 6337833-0 (Version None)
Quarter: 2009Q3

REPORT INFORMATION
  Report Type: 
  Country: None (occurrence: None)
  Receive Date: 20090902
  Receipt Date: 20090831
  Transmission Date: 20100115
  Serious: Yes (Hospitalization)
  Sender: FDA-Public Use
  Company Number: A0805210A

PATIENT
  Age: 10 Year
  Sex: Male
  Weight: 46.6 kg

DRUGS (1)
  1. LAMICTAL [Suspect]
     Indication: DRUG USE FOR UNKNOWN INDICATION
     Dosage: 125MG TWICE PER DAY
     Route: 048

REACTIONS (6)
  - ERYTHEMA [None]
  - FACE OEDEMA [None]
  - HYPOTENSION [None]
  - OLIGURIA [None]
  - PRURITUS [None]
  - STEVENS-JOHNSON SYNDROME [None]
